FAERS Safety Report 16104321 (Version 1)
Quarter: 2019Q1

REPORT INFORMATION
  Report Type: Spontaneous
  Country: JP (occurrence: JP)
  Receive Date: 20190322
  Receipt Date: 20190322
  Transmission Date: 20190418
  Serious: Yes (Life-Threatening, Hospitalization)
  Sender: FDA-Public Use
  Company Number: JP-009507513-1903JPN009020

PATIENT
  Age: 88 Year
  Sex: Male

DRUGS (5)
  1. IMIPENEM AND CILASTATIN [Suspect]
     Active Substance: CILASTATIN SODIUM\IMIPENEM
     Indication: PRODUCT USED FOR UNKNOWN INDICATION
     Dosage: DOSAGE FORM: UNSPECIFIED
     Route: 065
     Dates: start: 20000308, end: 20000410
  2. POLYETHYLENE GLYCOL [Concomitant]
     Active Substance: POLYETHYLENE GLYCOLS
     Dosage: DOSAGE FORM: UNSPECIFIED
     Route: 065
     Dates: start: 20000408
  3. CHONDROITIN SULFATE SODIUM [Concomitant]
     Active Substance: CHONDROITIN SULFATE (CHICKEN)
     Dosage: DOSAGE FORM: SOLUTION
     Route: 065
     Dates: start: 20000401
  4. MICONAZOLE. [Suspect]
     Active Substance: MICONAZOLE
     Indication: FUNGAL INFECTION
     Dosage: DOSAGE FORM: UNSPECIFIED
     Route: 041
     Dates: start: 20000302, end: 20000414
  5. VANCOMYCIN HYDROCHLORIDE. [Concomitant]
     Active Substance: VANCOMYCIN HYDROCHLORIDE
     Dosage: DOSAGE FORM: UNSPECIFIED
     Route: 065
     Dates: start: 20000301

REACTIONS (2)
  - Dermatitis exfoliative generalised [Not Recovered/Not Resolved]
  - Skin exfoliation [Not Recovered/Not Resolved]

NARRATIVE: CASE EVENT DATE: 20000404
